FAERS Safety Report 6297737-9 (Version None)
Quarter: 2009Q3

REPORT INFORMATION
  Report Type: 
  Country: None (occurrence: None)
  Receive Date: 20090804
  Receipt Date: 20090804
  Transmission Date: 20100115
  Serious: Yes (Other)
  Sender: FDA-Public Use
  Company Number: None

PATIENT
  Sex: Male
  Weight: 77.1115 kg

DRUGS (1)
  1. TOPIRAMATE [Suspect]
     Indication: MIGRAINE PROPHYLAXIS
     Dosage: 2 TABLETS TWICE DAILY PO
     Route: 048

REACTIONS (2)
  - MIDDLE INSOMNIA [None]
  - PRODUCT SUBSTITUTION ISSUE [None]
